FAERS Safety Report 7186348-9 (Version None)
Quarter: 2010Q4

REPORT INFORMATION
  Report Type: 
  Country: None (occurrence: None)
  Receive Date: 20101222
  Receipt Date: 20101214
  Transmission Date: 20110411
  Serious: Yes (Other)
  Sender: FDA-Public Use
  Company Number: FR-PFIZER INC-2010172192

PATIENT
  Age: 23 Year
  Sex: Male

DRUGS (4)
  1. LYRICA [Suspect]
     Dosage: 300 MG, 2X/DAY
     Dates: start: 20100301
  2. TOPALGIC [Concomitant]
     Dosage: 200 MG, 2X/DAY
  3. ATARAX [Concomitant]
     Dosage: 25 MG, 1X/DAY
  4. NOCTAMID [Concomitant]

REACTIONS (1)
  - EPILEPSY [None]
